FAERS Safety Report 8829513 (Version 1)
Quarter: 2012Q4

REPORT INFORMATION
  Report Type: 
  Country: JP (occurrence: JP)
  Receive Date: 20121008
  Receipt Date: 20121008
  Transmission Date: 20130627
  Serious: Yes (Other)
  Sender: FDA-Public Use
  Company Number: JP-PFIZER INC-2012245458

PATIENT
  Age: 46 Year
  Sex: Male

DRUGS (1)
  1. ZITHROMAC [Suspect]
     Indication: INFECTION PROPHYLAXIS
     Dosage: 500 mg, 1x/day
     Route: 048

REACTIONS (1)
  - Delirium [Unknown]
